FAERS Safety Report 10255814 (Version 1)
Quarter: 2014Q2

REPORT INFORMATION
  Report Type: Spontaneous
  Country: US (occurrence: US)
  Receive Date: 20140624
  Receipt Date: 20140624
  Transmission Date: 20141212
  Serious: No
  Sender: FDA-Public Use
  Company Number: US-ZOGENIX, INC.-2012ZX000012

PATIENT
  Age: 22 Year
  Sex: Female
  Weight: 68.1 kg

DRUGS (3)
  1. SUMAVEL DOSEPRO [Suspect]
     Indication: MIGRAINE
     Dates: start: 20111231, end: 20111231
  2. SUMAVEL DOSEPRO [Suspect]
     Dates: start: 20111231, end: 20111231
  3. TOPAMAX [Concomitant]
     Indication: MIGRAINE
     Route: 048

REACTIONS (3)
  - Drug ineffective [Recovered/Resolved]
  - Incorrect dose administered by device [Recovered/Resolved]
  - Palpitations [Recovered/Resolved]
